FAERS Safety Report 11615041 (Version 1)
Quarter: 2015Q4

REPORT INFORMATION
  Report Type: Spontaneous
  Country: US (occurrence: None)
  Receive Date: 20151008
  Receipt Date: 20151008
  Transmission Date: 20160304
  Serious: Yes (Death)
  Sender: FDA-Public Use
  Company Number: None

PATIENT
  Age: 20 Year
  Sex: Male
  Weight: 58.97 kg

DRUGS (1)
  1. DIPHENDRAMINE 50 MG EQUATE/P L DEVELOPMENT [Suspect]
     Active Substance: DIPHENHYDRAMINE
     Indication: SLEEP DISORDER
     Dates: start: 20140822, end: 20141101

REACTIONS (2)
  - Malaise [None]
  - Fatigue [None]

NARRATIVE: CASE EVENT DATE: 20141104
